FAERS Safety Report 6744674-9 (Version None)
Quarter: 2010Q2

REPORT INFORMATION
  Report Type: 
  Country: None (occurrence: None)
  Receive Date: 20100527
  Receipt Date: 20100524
  Transmission Date: 20101027
  Serious: Yes (Death, Hospitalization)
  Sender: FDA-Public Use
  Company Number: JP-ELI_LILLY_AND_COMPANY-JP201002004842

PATIENT
  Sex: Male
  Weight: 55.8 kg

DRUGS (13)
  1. ALIMTA [Suspect]
     Indication: LUNG ADENOCARCINOMA STAGE III
     Dosage: 500 MG/M2, OTHER
     Route: 042
     Dates: start: 20091118, end: 20100127
  2. PANVITAN [Concomitant]
     Dosage: 1 G, DAILY (1/D)
     Route: 048
     Dates: start: 20091112, end: 20100217
  3. HYDROXOCOBALAMIN ACETATE [Concomitant]
     Dosage: 1 MG, DAILY (1/D)
     Route: 030
     Dates: start: 20091028
  4. PURSENNID [Concomitant]
     Indication: CONSTIPATION
     Dosage: 12 MG, AS NEEDED
     Route: 048
     Dates: start: 20091118
  5. LOXOPROFEN [Concomitant]
     Indication: PAIN
     Dosage: 60 MG, 3/D
     Route: 048
     Dates: start: 20091118, end: 20091125
  6. CYTOTEC [Concomitant]
     Dosage: 200 MG, 3/D
     Route: 048
     Dates: start: 20091118, end: 20091125
  7. MAGLAX [Concomitant]
     Indication: CONSTIPATION
     Dosage: 330 MG, 3/D
     Route: 048
     Dates: start: 20091118, end: 20091125
  8. RINDERON-VG [Concomitant]
     Indication: SKIN DISORDER
     Dosage: UNK, UNKNOWN
     Route: 062
     Dates: start: 20091028
  9. ALLELOCK [Concomitant]
     Indication: SKIN DISORDER
     Dosage: 5 MG, 2/D
     Dates: start: 20091028, end: 20091118
  10. LAXOBERON [Concomitant]
     Indication: CONSTIPATION
     Dosage: UNK, AS NEEDED
     Route: 048
     Dates: start: 20091125
  11. OXYCONTIN [Concomitant]
     Indication: PAIN
     Dosage: 5 MG, 2/D
     Route: 048
     Dates: start: 20100106, end: 20100127
  12. OXINORM [Concomitant]
     Indication: PAIN
     Dosage: 2.5 MG, AS NEEDED
     Route: 048
     Dates: start: 20100106
  13. NAPROXEN [Concomitant]
     Indication: PAIN
     Dosage: 100 MG, 3/D
     Route: 048
     Dates: start: 20100106, end: 20100127

REACTIONS (1)
  - INTERSTITIAL LUNG DISEASE [None]
